FAERS Safety Report 14434969 (Version 17)
Quarter: 2021Q2

REPORT INFORMATION
  Report Type: Report from Study
  Country: CA (occurrence: CA)
  Receive Date: 20180125
  Receipt Date: 20210623
  Transmission Date: 20210716
  Serious: Yes (Other)
  Sender: FDA-Public Use
  Company Number: PHHY2017CA166015

PATIENT
  Age: 73 Year
  Sex: Male

DRUGS (6)
  1. SANDOSTATIN LAR DEPOT [Suspect]
     Active Substance: OCTREOTIDE ACETATE
     Dosage: UNK
     Route: 030
     Dates: start: 20180113
  2. SANDOSTATIN LAR DEPOT [Suspect]
     Active Substance: OCTREOTIDE ACETATE
     Indication: ACROMEGALY
     Dosage: 30 MG, QMO
     Route: 030
     Dates: start: 20171111
  3. OCTREOTIDE. [Suspect]
     Active Substance: OCTREOTIDE
     Indication: PRODUCT USED FOR UNKNOWN INDICATION
     Dosage: UNK
     Route: 065
  4. OCTREOTIDE. [Suspect]
     Active Substance: OCTREOTIDE
  5. SANDOSTATIN LAR DEPOT [Suspect]
     Active Substance: OCTREOTIDE ACETATE
     Dosage: 30 MG, QMO
     Route: 030
  6. OCTREOTIDE. [Suspect]
     Active Substance: OCTREOTIDE

REACTIONS (28)
  - Drooling [Unknown]
  - Blood growth hormone increased [Unknown]
  - Dizziness postural [Unknown]
  - Hypertension [Unknown]
  - Dizziness [Unknown]
  - Heart rate irregular [Not Recovered/Not Resolved]
  - Fall [Recovering/Resolving]
  - Syncope [Unknown]
  - Hypotension [Unknown]
  - Stress [Unknown]
  - Peripheral vascular disorder [Unknown]
  - Dizziness [Recovered/Resolved]
  - Bradycardia [Not Recovered/Not Resolved]
  - Fatigue [Unknown]
  - Memory impairment [Unknown]
  - Middle insomnia [Unknown]
  - Hyperhidrosis [Unknown]
  - Dyspnoea [Unknown]
  - Concomitant disease aggravated [Unknown]
  - Parkinson^s disease [Unknown]
  - Face injury [Recovering/Resolving]
  - Heart rate decreased [Unknown]
  - Tremor [Unknown]
  - Gait disturbance [Unknown]
  - Asthenia [Unknown]
  - Loss of consciousness [Unknown]
  - Malaise [Unknown]
  - Bowel movement irregularity [Unknown]

NARRATIVE: CASE EVENT DATE: 20171111
